FAERS Safety Report 14439925 (Version 1)
Quarter: 2018Q1

REPORT INFORMATION
  Report Type: Spontaneous
  Country: FR (occurrence: FR)
  Receive Date: 20180125
  Receipt Date: 20180125
  Transmission Date: 20180509
  Serious: Yes (Hospitalization)
  Sender: FDA-Public Use
  Company Number: FR-PFIZER INC-2018029709

PATIENT
  Age: 3 Year
  Sex: Male
  Weight: 14 kg

DRUGS (1)
  1. ADVILMED [Suspect]
     Active Substance: IBUPROFEN
     Dosage: 1 DF, 3X/DAY
     Route: 048
     Dates: start: 20171212, end: 20171213

REACTIONS (1)
  - Pharyngeal abscess [Recovered/Resolved]

NARRATIVE: CASE EVENT DATE: 20171213
